FAERS Safety Report 7892932-7 (Version None)
Quarter: 2011Q4

REPORT INFORMATION
  Report Type: 
  Country: None (occurrence: None)
  Receive Date: 20111104
  Receipt Date: 20111026
  Transmission Date: 20120403
  Serious: Yes (Life-Threatening, Hospitalization)
  Sender: FDA-Public Use
  Company Number: US-NOVOPROD-332433

PATIENT
  Age: 76 Year
  Sex: Female

DRUGS (5)
  1. GLUCAGEN [Suspect]
     Indication: DIAGNOSTIC PROCEDURE
     Dosage: 1 MG, SINGLE
     Route: 042
  2. LISINOPRIL [Concomitant]
     Indication: HYPERTENSION
  3. HYDROCHLOROTHIAZIDE [Concomitant]
  4. LEVOTHYROXINE SODIUM [Concomitant]
     Indication: HYPOTHYROIDISM
  5. ATENOLOL [Concomitant]
     Indication: HYPERTENSION

REACTIONS (1)
  - PHAEOCHROMOCYTOMA CRISIS [None]
